FAERS Safety Report 8576417-0 (Version None)
Quarter: 2012Q3

REPORT INFORMATION
  Report Type: 
  Country: None (occurrence: None)
  Receive Date: 20120807
  Receipt Date: 20120730
  Transmission Date: 20120928
  Serious: Yes (Other)
  Sender: FDA-Public Use
  Company Number: US-CELGENEUS-163-50794-12061464

PATIENT
  Sex: Female

DRUGS (18)
  1. BLOOD TRANSFUSIONS [Concomitant]
     Route: 041
  2. ARANESP [Concomitant]
     Route: 065
     Dates: start: 20070614, end: 20120227
  3. CALCIUM CARBONATE [Concomitant]
     Route: 065
     Dates: start: 20070614
  4. DMB [Concomitant]
     Route: 065
     Dates: start: 20070614, end: 20120227
  5. LOVAZA [Concomitant]
     Dosage: 1 GRAM
     Dates: start: 20070614
  6. SYNTHROID [Concomitant]
     Dosage: .125 MILLIGRAM
     Route: 065
     Dates: start: 20120614
  7. NEULASTA [Concomitant]
     Route: 065
  8. PREMARIN [Concomitant]
     Indication: HORMONE REPLACEMENT THERAPY
     Route: 065
  9. VIDAZA [Suspect]
     Dosage: 4.3333 MILLIGRAM
     Route: 058
     Dates: start: 20080301, end: 20111111
  10. COMPAZINE [Concomitant]
     Route: 065
     Dates: start: 20070614, end: 20120227
  11. LOMOTIL [Concomitant]
     Route: 065
     Dates: start: 20070614
  12. VIDAZA [Suspect]
     Route: 065
     Dates: start: 20050301, end: 20071101
  13. AMOXIL [Concomitant]
     Route: 065
     Dates: start: 20070614, end: 20120227
  14. BONIVA [Concomitant]
     Route: 065
     Dates: start: 20070614
  15. MULTI-VITAMINS [Concomitant]
     Route: 065
     Dates: start: 20070614
  16. PEPCID [Concomitant]
     Dosage: 40 MILLIGRAM
     Route: 065
     Dates: start: 20120614
  17. IMODIUM [Concomitant]
     Route: 065
     Dates: start: 20070614, end: 20120227
  18. K LYTE CL [Concomitant]
     Dosage: 20 MILLIEQUIVALENTS
     Route: 065
     Dates: start: 20070614

REACTIONS (5)
  - BREAST CANCER IN SITU [None]
  - HAEMOGLOBIN DECREASED [None]
  - BREAST CANCER RECURRENT [None]
  - ORAL HERPES [None]
  - OEDEMA PERIPHERAL [None]
